FAERS Safety Report 7619320-2 (Version None)
Quarter: 2011Q3

REPORT INFORMATION
  Report Type: 
  Country: None (occurrence: None)
  Receive Date: 20110719
  Receipt Date: 20110708
  Transmission Date: 20111222
  Serious: No
  Sender: FDA-Public Use
  Company Number: US-B.I. PHARMACEUTICALS,INC./RIDGEFIELD-2011-BP-17472BP

PATIENT
  Sex: Female

DRUGS (4)
  1. FISH OIL [Concomitant]
     Indication: VITAMIN SUPPLEMENTATION
     Route: 048
  2. PRADAXA [Suspect]
     Indication: ATRIAL FIBRILLATION
     Dosage: 300 MG
     Route: 048
     Dates: start: 20110617
  3. SYNTHROID [Concomitant]
     Indication: HYPOTHYROIDISM
     Dosage: 150 MCG
     Route: 048
  4. TAMBOCOR [Concomitant]
     Indication: ATRIAL FIBRILLATION
     Dosage: 300 MG
     Route: 048

REACTIONS (1)
  - ALOPECIA [None]
